FAERS Safety Report 10076801 (Version 1)
Quarter: 2014Q2

REPORT INFORMATION
  Report Type: Spontaneous
  Country: KR (occurrence: KR)
  Receive Date: 20140414
  Receipt Date: 20140414
  Transmission Date: 20141212
  Serious: Yes (Other)
  Sender: FDA-Public Use
  Company Number: KR-ACTAVIS-2014-06977

PATIENT
  Age: 36 Year
  Sex: Male

DRUGS (4)
  1. DULOXETINE (UNKNOWN) [Suspect]
     Indication: DEPRESSION
     Dosage: 60 MG, DAILY
     Route: 065
  2. DULOXETINE (UNKNOWN) [Suspect]
     Dosage: 30 MG, DAILY
     Route: 065
  3. QUETIAPINE (UNKNOWN) [Suspect]
     Indication: DEPRESSION
     Dosage: 150 MG, DAILY
     Route: 065
  4. ESCITALOPRAM [Concomitant]
     Indication: DEPRESSION
     Dosage: 20 MG, DAILY
     Route: 065

REACTIONS (1)
  - Urinary retention [Recovered/Resolved]
